FAERS Safety Report 5916980-9 (Version None)
Quarter: 2008Q4

REPORT INFORMATION
  Report Type: 
  Country: None (occurrence: None)
  Receive Date: 20081013
  Receipt Date: 20080929
  Transmission Date: 20090506
  Serious: Yes (Death)
  Sender: FDA-Public Use
  Company Number: FR-GENENTECH-268758

PATIENT
  Sex: Female

DRUGS (2)
  1. BEVACIZUMAB [Suspect]
     Indication: BREAST CANCER METASTATIC
     Dosage: 600 MG, Q2W
     Route: 042
     Dates: start: 20071206, end: 20080520
  2. TAXOL [Suspect]
     Indication: BREAST CANCER
     Dosage: 80 MG, 1/WEEK
     Dates: start: 20071206, end: 20080222

REACTIONS (2)
  - METASTASES TO MENINGES [None]
  - VOMITING [None]
